FAERS Safety Report 4611826-3 (Version None)
Quarter: 2005Q1

REPORT INFORMATION
  Report Type: 
  Country: None (occurrence: None)
  Receive Date: 20050317
  Receipt Date: 20050309
  Transmission Date: 20050727
  Serious: Yes (Other)
  Sender: FDA-Public Use
  Company Number: ES-ABBOTT-05P-144-0293516-00

PATIENT
  Sex: Male

DRUGS (6)
  1. RITONAVIR SOFT GELATIN CAPSULES [Suspect]
     Indication: HIV INFECTION
     Route: 048
     Dates: start: 20050127, end: 20050131
  2. FOSAMPRENAVIR [Concomitant]
     Indication: HIV INFECTION
     Route: 048
     Dates: start: 20050127, end: 20050131
  3. VALPROATE SODIUM [Concomitant]
     Indication: CONVULSION
     Route: 048
  4. LEVETIRACETAM [Concomitant]
     Indication: CONVULSION
     Route: 048
  5. GABAPENTIN [Concomitant]
     Indication: CONVULSION
     Route: 048
  6. ACENOCOUMAROL [Concomitant]
     Indication: CEREBROVASCULAR ACCIDENT
     Route: 048

REACTIONS (1)
  - STATUS EPILEPTICUS [None]
